FAERS Safety Report 4549700-3 (Version None)
Quarter: 2005Q1

REPORT INFORMATION
  Report Type: 
  Country: None (occurrence: None)
  Receive Date: 20050110
  Receipt Date: 20041227
  Transmission Date: 20050727
  Serious: Yes (Hospitalization)
  Sender: FDA-Public Use
  Company Number: 2004241303US

PATIENT
  Age: 43 Year
  Sex: Female
  Weight: 69 kg

DRUGS (8)
  1. IRINOTECAN HCL [Suspect]
     Indication: GLIOBLASTOMA MULTIFORME
     Dosage: 183 MG (WEEKLY), INTRAVENOUS
     Route: 042
     Dates: start: 20041013
  2. THALIDOMIDE (THALIDOMIDE) [Suspect]
     Indication: GLIOBLASTOMA MULTIFORME
     Dosage: 400 MG (DAILY), ORAL
     Route: 048
     Dates: start: 20041013
  3. LEVETIRACETAM [Concomitant]
  4. PAROXETINE HCL [Concomitant]
  5. ALBUTEROL SULFATE [Concomitant]
  6. SALMETEROL XINAFOATE (SALMETEROL, XINAFOATE) [Concomitant]
  7. DEXAMETHASONE [Concomitant]
  8. WARFARIN SODIUM [Concomitant]

REACTIONS (2)
  - NEUTROPHIL COUNT DECREASED [None]
  - PNEUMONITIS [None]
